FAERS Safety Report 16692694 (Version 3)
Quarter: 2019Q3

REPORT INFORMATION
  Report Type: Spontaneous
  Country: US (occurrence: US)
  Receive Date: 20190812
  Receipt Date: 20190927
  Transmission Date: 20191004
  Serious: No
  Sender: FDA-Public Use
  Company Number: US-PFIZER INC-2019343114

PATIENT
  Age: 47 Year
  Sex: Female

DRUGS (12)
  1. LYRICA [Suspect]
     Active Substance: PREGABALIN
     Indication: FIBROMYALGIA
     Dosage: 300 MG, UNK
     Route: 048
     Dates: start: 201805
  2. KLONOPIN [Concomitant]
     Active Substance: CLONAZEPAM
     Indication: ANXIETY
     Dosage: UNK UNK, 2X/DAY
     Dates: start: 20181116
  3. ABILIFY [Concomitant]
     Active Substance: ARIPIPRAZOLE
     Indication: BIPOLAR DISORDER
     Dosage: 15 MG, DAILY
  4. TEMAZEPAM. [Concomitant]
     Active Substance: TEMAZEPAM
     Indication: SLEEP DISORDER
     Dosage: 30 MG, 1X/DAY
  5. EFFEXOR XR [Concomitant]
     Active Substance: VENLAFAXINE HYDROCHLORIDE
     Indication: DEPRESSION
     Dosage: UNK UNK, DAILY
     Dates: start: 20180729
  6. LYRICA [Suspect]
     Active Substance: PREGABALIN
     Indication: NEURALGIA
     Dosage: 100 MG, UNK
     Route: 048
  7. ATORVASTATIN [Concomitant]
     Active Substance: ATORVASTATIN
     Indication: LIPIDS INCREASED
     Dosage: 20 MG, DAILY
  8. LAMICTAL [Concomitant]
     Active Substance: LAMOTRIGINE
     Indication: AFFECTIVE DISORDER
     Dosage: UNK UNK, DAILY
     Dates: start: 20180729
  9. VESICARE [Concomitant]
     Active Substance: SOLIFENACIN SUCCINATE
     Dosage: 5 MG, DAILY
  10. LYRICA [Suspect]
     Active Substance: PREGABALIN
     Dosage: 300 MG, DAILY  (100 MG AM + 200 MG QHS )
     Route: 048
     Dates: end: 20190904
  11. TRAZODONE [Concomitant]
     Active Substance: TRAZODONE HYDROCHLORIDE
     Indication: DEPRESSION
     Dosage: 300 MG, 1X/DAY
  12. METFORMIN [Concomitant]
     Active Substance: METFORMIN HYDROCHLORIDE
     Indication: DIABETES MELLITUS
     Dosage: 500 MG, 2X/DAY

REACTIONS (2)
  - Memory impairment [Unknown]
  - Expired product administered [Unknown]
